FAERS Safety Report 5738082-7 (Version None)
Quarter: 2008Q2

REPORT INFORMATION
  Report Type: 
  Country: None (occurrence: None)
  Receive Date: 20080509
  Receipt Date: 20070823
  Transmission Date: 20081010
  Serious: Yes (Hospitalization)
  Sender: FDA-Public Use
  Company Number: PHEH2007US07058

PATIENT
  Age: 29 Year
  Sex: Male
  Weight: 65.8 kg

DRUGS (3)
  1. TEGRETOL [Suspect]
     Indication: CONVULSION
     Dosage: 200 MG, TID, ORAL; 800 MG, ORAL
     Route: 048
     Dates: start: 19920101, end: 20070504
  2. TEGRETOL [Suspect]
     Indication: CONVULSION
     Dosage: 200 MG, TID, ORAL; 800 MG, ORAL
     Route: 048
     Dates: start: 20070506, end: 20070506
  3. ASPIRIN [Concomitant]

REACTIONS (3)
  - CONVULSION [None]
  - RASH [None]
  - URTICARIA [None]
